FAERS Safety Report 7054345-X (Version None)
Quarter: 2010Q4

REPORT INFORMATION
  Report Type: 
  Country: None (occurrence: None)
  Receive Date: 20101014
  Receipt Date: 20101001
  Transmission Date: 20110411
  Serious: Yes (Death)
  Sender: FDA-Public Use
  Company Number: 2010EU005235

PATIENT
  Age: 45 Year
  Sex: Female
  Weight: 61 kg

DRUGS (3)
  1. FK463 (MICAFUNGIN) INJECTION [Suspect]
     Indication: ANTIFUNGAL PROPHYLAXIS
     Dosage: 100 MG, UID/QD, IV NOS
     Route: 042
     Dates: start: 20100913
  2. TACROLIMUS [Suspect]
     Indication: IMMUNOSUPPRESSION
     Dosage: ORAL
     Route: 048
     Dates: start: 20100910
  3. CELLCEPT [Suspect]
     Indication: IMMUNOSUPPRESSION
     Dosage: ORAL
     Route: 048
     Dates: start: 20100910

REACTIONS (2)
  - CARDIO-RESPIRATORY ARREST [None]
  - CONVULSION [None]
